FAERS Safety Report 13598833 (Version 1)
Quarter: 2017Q2

REPORT INFORMATION
  Report Type: Spontaneous
  Country: NL (occurrence: NL)
  Receive Date: 20170531
  Receipt Date: 20170531
  Transmission Date: 20170830
  Serious: Yes (Hospitalization)
  Sender: FDA-Public Use
  Company Number: NL-PFIZER INC-2017226314

PATIENT
  Age: 45 Year
  Sex: Female
  Weight: 80 kg

DRUGS (3)
  1. STEDIRIL-30 [Suspect]
     Active Substance: ETHINYL ESTRADIOL\LEVONORGESTREL
     Indication: MENORRHAGIA
     Dosage: 1 DF, 1X/DAY
     Route: 048
     Dates: start: 2016, end: 2017
  2. SOTALOL SANDOZ [Concomitant]
     Active Substance: SOTALOL
     Dosage: 80 MG, 3X/DAY
     Route: 048
  3. MARCOUMAR [Concomitant]
     Active Substance: PHENPROCOUMON
     Dosage: UNK, 1X/DAY (ACCORDING SCHEDULE)
     Route: 048

REACTIONS (10)
  - Vomiting [Recovered/Resolved]
  - Insomnia [Recovered/Resolved]
  - Product use in unapproved indication [Unknown]
  - Dyspnoea [Recovered/Resolved]
  - Intervertebral disc disorder [Unknown]
  - Haemangioma [Unknown]
  - Dizziness [Recovered/Resolved]
  - Cardiac valve disease [Unknown]
  - Alopecia [Unknown]
  - Back pain [Recovering/Resolving]

NARRATIVE: CASE EVENT DATE: 2016
